FAERS Safety Report 11911844 (Version 3)
Quarter: 2016Q2

REPORT INFORMATION
  Report Type: Spontaneous
  Country: US (occurrence: US)
  Receive Date: 20160112
  Receipt Date: 20160426
  Transmission Date: 20160815
  Serious: No
  Sender: FDA-Public Use
  Company Number: US-BAYER-2016-004990

PATIENT
  Age: 26 Year
  Sex: Female

DRUGS (1)
  1. MIRENA [Suspect]
     Active Substance: LEVONORGESTREL
     Indication: CONTRACEPTION
     Dosage: 20 MCG/24HR, CONT
     Route: 015
     Dates: start: 20151029, end: 20160106

REACTIONS (4)
  - Vaginal discharge [None]
  - Dyspareunia [None]
  - Device expulsion [None]
  - Discomfort [None]

NARRATIVE: CASE EVENT DATE: 20151229
